FAERS Safety Report 10029496 (Version 1)
Quarter: 2014Q1

REPORT INFORMATION
  Report Type: Spontaneous
  Country: US (occurrence: None)
  Receive Date: 20140320
  Receipt Date: 20140320
  Transmission Date: 20141002
  Serious: Yes (Death)
  Sender: FDA-Public Use
  Company Number: None

PATIENT
  Age: 75 Year
  Sex: Male
  Weight: 72.58 kg

DRUGS (1)
  1. TOP CARE DAY TIME COLD + FLU ACT 325, DEX10 MG, PHENYLEPHRINE 5 [Suspect]
     Indication: NASOPHARYNGITIS
     Route: 048
     Dates: start: 20140215, end: 20140216

REACTIONS (1)
  - Sudden death [None]
